FAERS Safety Report 9411235 (Version 1)
Quarter: 2013Q3

REPORT INFORMATION
  Report Type: Spontaneous
  Country: US (occurrence: US)
  Receive Date: 20130722
  Receipt Date: 20130722
  Transmission Date: 20140515
  Serious: No
  Sender: FDA-Public Use
  Company Number: US-009507513-1307USA009846

PATIENT
  Age: 28 Year
  Sex: Female

DRUGS (4)
  1. ISENTRESS [Suspect]
     Dosage: 800
     Route: 048
  2. REYATAZ [Suspect]
     Dosage: 300
     Route: 048
  3. NORVIR [Suspect]
     Dosage: 100
     Route: 048
  4. COMBIVIR [Suspect]
     Dosage: 2
     Route: 048

REACTIONS (1)
  - Exposure during pregnancy [Unknown]
